FAERS Safety Report 5302298-4 (Version None)
Quarter: 2007Q2

REPORT INFORMATION
  Report Type: 
  Country: None (occurrence: None)
  Receive Date: 20070412
  Receipt Date: 20070405
  Transmission Date: 20071010
  Serious: Yes (Hospitalization)
  Sender: FDA-Public Use
  Company Number: 2007-01755

PATIENT
  Age: 80 Year
  Sex: Male

DRUGS (3)
  1. TRELSTAR DEPOT [Suspect]
     Indication: PROSTATE CANCER METASTATIC
     Dosage: 37.5 MG, SINGLE, INTRAMUSCULAR
     Route: 030
     Dates: start: 20070308
  2. ANTIBIOTICS [Concomitant]
  3. FLUTAMIDE [Concomitant]

REACTIONS (1)
  - PYREXIA [None]
